FAERS Safety Report 19753451 (Version 2)
Quarter: 2025Q4

REPORT INFORMATION
  Report Type: Spontaneous
  Country: US (occurrence: US)
  Receive Date: 20210826
  Receipt Date: 20251218
  Transmission Date: 20260118
  Serious: No
  Sender: SANOFI AVENTIS
  Company Number: US-SA-SAC20210824000233

PATIENT
  Age: 67 Year
  Sex: Female

DRUGS (1)
  1. DUPIXENT [Suspect]
     Active Substance: DUPILUMAB
     Indication: Dermatitis atopic
     Dosage: 300 MG, QOW
     Route: 058
     Dates: start: 202011

REACTIONS (4)
  - Visual impairment [Unknown]
  - Pruritus [Not Recovered/Not Resolved]
  - Eye pruritus [Unknown]
  - Product storage error [Unknown]

NARRATIVE: CASE EVENT DATE: 20210820
